FAERS Safety Report 13086149 (Version 1)
Quarter: 2017Q1

REPORT INFORMATION
  Report Type: Report from Study
  Country: US (occurrence: US)
  Receive Date: 20170104
  Receipt Date: 20170104
  Transmission Date: 20170428
  Serious: Yes (Death, Other)
  Sender: FDA-Public Use
  Company Number: US-MYLANLABS-2016M1058509

PATIENT

DRUGS (2)
  1. ALEMTUZUMAB [Concomitant]
     Active Substance: ALEMTUZUMAB
     Indication: RELAPSING-REMITTING MULTIPLE SCLEROSIS
     Dosage: 24MG/DAY FOR 5 DAYS AT BASELINE AND 3 DAYS 12 MONTHS LATER
     Route: 042
  2. WARFARIN [Suspect]
     Active Substance: WARFARIN
     Indication: PRODUCT USED FOR UNKNOWN INDICATION
     Route: 065

REACTIONS (4)
  - Retroperitoneal haemorrhage [Unknown]
  - Sepsis [Fatal]
  - Decubitus ulcer [Fatal]
  - Osteomyelitis [Unknown]
